FAERS Safety Report 12295063 (Version 4)
Quarter: 2016Q2

REPORT INFORMATION
  Report Type: Report from Study
  Country: CN (occurrence: CN)
  Receive Date: 20160422
  Receipt Date: 20160620
  Transmission Date: 20160815
  Serious: Yes (Hospitalization, Other)
  Sender: FDA-Public Use
  Company Number: CN-GLAXOSMITHKLINE-CN2016043187

PATIENT
  Age: 75 Year
  Sex: Male
  Weight: 41 kg

DRUGS (4)
  1. CTM (CHLORPHENAMINE) [Concomitant]
     Indication: INJURY
     Route: 048
     Dates: start: 20160128, end: 20160314
  2. CELEBREX [Concomitant]
     Active Substance: CELECOXIB
     Indication: INJURY
     Dosage: 0.2 G, QD
     Route: 048
     Dates: start: 20160128, end: 20160203
  3. DICLOFENAC DIETHYLAMINE EMULGEL [Concomitant]
     Indication: INJURY
  4. FLUTICASONE FUROATE + VILANTEROL TRIFENATATE [Suspect]
     Active Substance: FLUTICASONE FUROATE\VILANTEROL TRIFENATATE
     Indication: CHRONIC OBSTRUCTIVE PULMONARY DISEASE
     Dosage: 100/25 UG, QD
     Route: 055
     Dates: start: 20151014

REACTIONS (3)
  - Spinal compression fracture [Recovered/Resolved with Sequelae]
  - Osteoporosis [Recovered/Resolved with Sequelae]
  - Spondylitis [Recovered/Resolved with Sequelae]

NARRATIVE: CASE EVENT DATE: 20160124
